FAERS Safety Report 20449987 (Version 2)
Quarter: 2022Q1

REPORT INFORMATION
  Report Type: Spontaneous
  Country: JP (occurrence: JP)
  Receive Date: 20220209
  Receipt Date: 20220303
  Transmission Date: 20220423
  Serious: Yes (Death, Other)
  Sender: FDA-Public Use
  Company Number: JP-GUERBET-JP-20220007

PATIENT
  Age: 80 Year
  Sex: Male

DRUGS (2)
  1. LIPIODOL [Suspect]
     Active Substance: ETHIODIZED OIL
     Indication: Therapeutic embolisation
     Route: 013
  2. ENBUCRILATE [Suspect]
     Active Substance: ENBUCRILATE
     Indication: Therapeutic embolisation
     Route: 013

REACTIONS (5)
  - Cardiac arrest [Fatal]
  - Interstitial lung disease [Fatal]
  - Haemoptysis [Fatal]
  - Blood beta-D-glucan abnormal [Fatal]
  - Product use in unapproved indication [Unknown]
